FAERS Safety Report 12417551 (Version 3)
Quarter: 2016Q3

REPORT INFORMATION
  Report Type: Spontaneous
  Country: US (occurrence: US)
  Receive Date: 20160530
  Receipt Date: 20160826
  Transmission Date: 20161109
  Serious: Yes (Hospitalization, Other)
  Sender: FDA-Public Use
  Company Number: US-JNJFOC-20160523949

PATIENT
  Sex: Male

DRUGS (9)
  1. XARELTO [Suspect]
     Active Substance: RIVAROXABAN
     Indication: THROMBOSIS PROPHYLAXIS
     Dosage: 20 MG EACH DAY, LATER REDUCEDTO 15 MG EACH DAY
     Route: 048
     Dates: start: 201401, end: 201506
  2. XARELTO [Suspect]
     Active Substance: RIVAROXABAN
     Indication: ATRIAL FIBRILLATION
     Dosage: 20 MG EACH DAY, LATER REDUCEDTO 15 MG EACH DAY
     Route: 048
     Dates: start: 201401, end: 201506
  3. XARELTO [Suspect]
     Active Substance: RIVAROXABAN
     Indication: THROMBOSIS PROPHYLAXIS
     Dosage: 20 MG EACH DAY, LATER REDUCEDTO 15 MG EACH DAY
     Route: 048
  4. XARELTO [Suspect]
     Active Substance: RIVAROXABAN
     Indication: CEREBROVASCULAR ACCIDENT PROPHYLAXIS
     Dosage: 20 MG EACH DAY, LATER REDUCEDTO 15 MG EACH DAY
     Route: 048
     Dates: start: 20131204
  5. XARELTO [Suspect]
     Active Substance: RIVAROXABAN
     Indication: CEREBROVASCULAR ACCIDENT PROPHYLAXIS
     Dosage: 20 MG EACH DAY, LATER REDUCEDTO 15 MG EACH DAY
     Route: 048
     Dates: start: 201401, end: 201506
  6. XARELTO [Suspect]
     Active Substance: RIVAROXABAN
     Indication: THROMBOSIS PROPHYLAXIS
     Dosage: 20 MG EACH DAY, LATER REDUCEDTO 15 MG EACH DAY
     Route: 048
     Dates: start: 20131204
  7. XARELTO [Suspect]
     Active Substance: RIVAROXABAN
     Indication: CEREBROVASCULAR ACCIDENT PROPHYLAXIS
     Dosage: 20 MG EACH DAY, LATER REDUCEDTO 15 MG EACH DAY
     Route: 048
  8. XARELTO [Suspect]
     Active Substance: RIVAROXABAN
     Indication: ATRIAL FIBRILLATION
     Dosage: 20 MG EACH DAY, LATER REDUCEDTO 15 MG EACH DAY
     Route: 048
     Dates: start: 20131204
  9. XARELTO [Suspect]
     Active Substance: RIVAROXABAN
     Indication: ATRIAL FIBRILLATION
     Dosage: 20 MG EACH DAY, LATER REDUCEDTO 15 MG EACH DAY
     Route: 048

REACTIONS (2)
  - Ischaemic stroke [Unknown]
  - Cerebrovascular accident [Unknown]

NARRATIVE: CASE EVENT DATE: 2014
